FAERS Safety Report 14659631 (Version 2)
Quarter: 2018Q2

REPORT INFORMATION
  Report Type: Report from Study
  Country: DE (occurrence: DE)
  Receive Date: 20180320
  Receipt Date: 20180531
  Transmission Date: 20180711
  Serious: Yes (Death)
  Sender: FDA-Public Use
  Company Number: DE-ACTELION-A-CH2017-153410

PATIENT
  Age: 66 Year
  Sex: Male

DRUGS (16)
  1. UPTRAVI [Suspect]
     Active Substance: SELEXIPAG
     Dosage: 800 ?G, BID
     Route: 048
     Dates: start: 20170523
  2. TOREM [Concomitant]
     Active Substance: TORSEMIDE
     Dosage: 15 MG, QD
  3. GLYCOPYRRONIUM BROMIDE W/INDACATEROL MALEATE [Concomitant]
     Dosage: 43/85 UG OD
  4. MIRTAZAPIN [Concomitant]
     Active Substance: MIRTAZAPINE
     Dosage: 15 MG, OD
  5. UPTRAVI [Suspect]
     Active Substance: SELEXIPAG
     Dosage: 800 ?G, BID
     Route: 048
     Dates: start: 20171022
  6. XIPAMID [Concomitant]
     Active Substance: XIPAMIDE
     Dosage: 10 MG, OD
  7. UPTRAVI [Suspect]
     Active Substance: SELEXIPAG
     Indication: PULMONARY ARTERIAL HYPERTENSION
     Dosage: 400 ?G, BID
     Route: 048
     Dates: start: 20170428
  8. UPTRAVI [Suspect]
     Active Substance: SELEXIPAG
     Dosage: 600 ?G, BID
     Route: 048
     Dates: start: 20170505
  9. REVATIO [Concomitant]
     Active Substance: SILDENAFIL CITRATE
     Indication: PULMONARY ARTERIAL HYPERTENSION
     Dosage: 20 MG, TID
     Route: 048
  10. URSOFALK [Concomitant]
     Active Substance: URSODIOL
     Dosage: 1250 MG, QD
  11. UPTRAVI [Suspect]
     Active Substance: SELEXIPAG
     Dosage: 1000 MCG, BID
     Route: 048
     Dates: start: 20170806
  12. ADENURIC [Concomitant]
     Active Substance: FEBUXOSTAT
     Dosage: 80 MG, UNK
  13. UPTRAVI [Suspect]
     Active Substance: SELEXIPAG
     Dosage: 400 ?G, BID
     Route: 048
     Dates: start: 20180123, end: 20180306
  14. EUTHYROX [Concomitant]
     Active Substance: LEVOTHYROXINE SODIUM
     Dosage: 125 MCG, QD
  15. UPTRAVI [Suspect]
     Active Substance: SELEXIPAG
     Dosage: 1000 ?G, BID
     Route: 048
     Dates: start: 20171001, end: 20171022
  16. OPSUMIT [Suspect]
     Active Substance: MACITENTAN
     Indication: PULMONARY ARTERIAL HYPERTENSION
     Dosage: 10 MG, OD
     Route: 048
     Dates: start: 201712, end: 20180306

REACTIONS (6)
  - Myalgia [Unknown]
  - Arthralgia [Unknown]
  - Drug ineffective [Unknown]
  - Diarrhoea [Unknown]
  - Headache [Unknown]
  - Death [Fatal]

NARRATIVE: CASE EVENT DATE: 20170429
